FAERS Safety Report 9251640 (Version 2)
Quarter: 2013Q2

REPORT INFORMATION
  Report Type: Spontaneous
  Country: US (occurrence: US)
  Receive Date: 20130424
  Receipt Date: 20130621
  Transmission Date: 20140414
  Serious: No
  Sender: FDA-Public Use
  Company Number: US-ASTRAZENECA-2013SE27403

PATIENT
  Age: 16215 Day
  Sex: Female
  Weight: 51.7 kg

DRUGS (25)
  1. NEXIUM [Suspect]
     Indication: GASTROOESOPHAGEAL REFLUX DISEASE
     Route: 048
     Dates: start: 1980, end: 20100628
  2. NEXIUM [Suspect]
     Indication: GASTROOESOPHAGEAL REFLUX DISEASE
     Dosage: TWO TIMES A DAY OR SOMETIMES THREE TIMES A DAY
     Route: 048
  3. NEXIUM [Suspect]
     Indication: GASTROOESOPHAGEAL REFLUX DISEASE
     Route: 048
     Dates: start: 20090402
  4. TRAMADOL HCL [Concomitant]
     Dosage: THREE TIMES A DAY
  5. TRAMADOL HCL [Concomitant]
  6. FOLIC ACID [Concomitant]
     Dates: start: 20090402
  7. ALENDRONATE SODIUM [Concomitant]
     Dates: start: 20090514
  8. TREXIMET [Concomitant]
     Dosage: 85-800 MG
     Dates: start: 20090514
  9. TRICOR [Concomitant]
     Dates: start: 20090514
  10. NAPROXEN EC [Concomitant]
     Dates: start: 20090520
  11. METHYLPREDNISOLONE [Concomitant]
     Dates: start: 20090828
  12. VERAMYST [Concomitant]
     Route: 045
     Dates: start: 20091019
  13. LORATADINE [Concomitant]
     Dates: start: 20091019
  14. TRILIPIX DR [Concomitant]
     Dates: start: 20091109
  15. SULFAMETHOXAZOLE [Concomitant]
     Dates: start: 20091208
  16. ACTONEL [Concomitant]
     Dates: start: 20100105
  17. DIPHENOXYLATE-ATROPINE [Concomitant]
     Dates: start: 20100107
  18. SUMATRIPTAN SUCCINATE [Concomitant]
     Dates: start: 20100304
  19. HYDROCODONE-ACETAMINOPHEN [Concomitant]
     Dates: start: 20100319
  20. HYDROCODONE-ACETAMINOPHEN [Concomitant]
     Dosage: 500 MG/5 MG, 1 BY MOUTH EVERY 4(HOUR) TO 6 (HOUR)
     Dates: start: 20100319
  21. LYRICA [Concomitant]
     Dates: start: 20100329
  22. CYCLOBENZAPRINE [Concomitant]
     Dates: start: 20100331
  23. GUAIFENESIN [Concomitant]
     Dosage: 100MG/10 ML
     Dates: start: 20100408
  24. ULTRAM [Concomitant]
     Dosage: THREE TIMES DAILY AS NEEDED
     Dates: start: 20120803
  25. DECADRON [Concomitant]
     Route: 030

REACTIONS (8)
  - Osteoporosis [Unknown]
  - Bone density decreased [Unknown]
  - Fracture [Unknown]
  - Fibula fracture [Unknown]
  - Bone pain [Unknown]
  - Ankle fracture [Unknown]
  - Ligament sprain [Unknown]
  - Contusion [Unknown]
